FAERS Safety Report 5886635-8 (Version None)
Quarter: 2008Q3

REPORT INFORMATION
  Report Type: 
  Country: None (occurrence: None)
  Receive Date: 20080917
  Receipt Date: 20080908
  Transmission Date: 20090109
  Serious: Yes (Other)
  Sender: FDA-Public Use
  Company Number: PHBS2008BE05666

PATIENT
  Sex: Female
  Weight: 4.59 kg

DRUGS (5)
  1. PAMIDRONATE DISODIUM [Suspect]
     Dosage: 0.25MG/KG/DAY
     Route: 042
  2. PAMIDRONATE DISODIUM [Suspect]
     Dosage: 0.4MG/KG/DAY
  3. FLUID/ELECTROLYTE REPLACEMENT THERAPY [Concomitant]
  4. FUROSEMIDE [Concomitant]
     Dosage: 2MG/KG/DAY
     Route: 042
  5. METHYLPREDNISOLONE 16MG TAB [Concomitant]
     Dosage: 2MG/KG/DAY

REACTIONS (2)
  - NEPHROCALCINOSIS [None]
  - ULTRASOUND KIDNEY ABNORMAL [None]
